FAERS Safety Report 10219283 (Version 1)
Quarter: 2014Q2

REPORT INFORMATION
  Report Type: Spontaneous
  Country: FR (occurrence: FR)
  Receive Date: 20140605
  Receipt Date: 20140605
  Transmission Date: 20141212
  Serious: Yes (Life-Threatening, Hospitalization)
  Sender: FDA-Public Use
  Company Number: FR-ASTRAZENECA-2014SE38731

PATIENT
  Age: 32 Year
  Sex: Male

DRUGS (4)
  1. XEROQUEL [Suspect]
     Indication: SCHIZOPHRENIA, PARANOID TYPE
     Route: 048
     Dates: start: 2013
  2. BACLOFENE [Suspect]
     Route: 048
     Dates: start: 2012
  3. LEXOMIL [Concomitant]
  4. ZYPREXA [Concomitant]
     Dates: start: 20140511

REACTIONS (3)
  - Confusional state [Recovered/Resolved]
  - Logorrhoea [Recovered/Resolved]
  - Agitation [Recovered/Resolved]
